FAERS Safety Report 7305613-5 (Version None)
Quarter: 2011Q1

REPORT INFORMATION
  Report Type: 
  Country: None (occurrence: None)
  Receive Date: 20110209
  Receipt Date: 20110127
  Transmission Date: 20110831
  Serious: Yes (Hospitalization)
  Sender: FDA-Public Use
  Company Number: 2010P1003456

PATIENT
  Age: 81 Year
  Sex: Female
  Weight: 58.9676 kg

DRUGS (17)
  1. DETROL LA [Concomitant]
  2. MILK OF MAGNESIA TAB [Concomitant]
  3. EXTRA STRENGTH TYLENOL [Concomitant]
  4. PANTOPRAZOLE [Concomitant]
  5. DIAZYDE [Concomitant]
  6. VITAMIN D [Concomitant]
  7. AMLODIPINE [Concomitant]
  8. PREV MEDS [Concomitant]
  9. FENTANYL-75 [Suspect]
     Indication: BACK PAIN
     Dosage: 75 MCG/JR; Q 72 HR; TDER
     Route: 062
     Dates: start: 20100601
  10. RE DUALVIT PLUS (IRON) [Concomitant]
  11. LEXAPRO [Suspect]
     Indication: DEPRESSIVE SYMPTOM
     Dosage: 20 MG; PO
     Route: 048
     Dates: start: 20090202, end: 20101101
  12. SERTRALINE 50 MG (NO PREF. NAME) [Suspect]
     Indication: DEPRESSION
     Dosage: 50 MG; QD
     Dates: start: 20101101
  13. POTASSIUM CHLORIDE [Concomitant]
  14. FUROSEMIDE [Suspect]
     Indication: FLUID RETENTION
     Dosage: 40 MG; QD; PO
     Route: 048
     Dates: start: 20090220
  15. FUROSEMIDE [Suspect]
     Indication: OEDEMA PERIPHERAL
     Dosage: 40 MG; QD; PO
     Route: 048
     Dates: start: 20090220
  16. FENTANYL-50 [Suspect]
     Indication: BACK PAIN
     Dosage: 50 MCG/HR; Q 72 HR; TDER, 50 MCG/HR; Q 72 HR; TDER
     Route: 062
     Dates: start: 20100601
  17. FENTANYL-50 [Suspect]
     Indication: BACK PAIN
     Dosage: 50 MCG/HR; Q 72 HR; TDER, 50 MCG/HR; Q 72 HR; TDER
     Route: 062
     Dates: start: 20090901, end: 20100601

REACTIONS (7)
  - DRUG INEFFECTIVE [None]
  - DIZZINESS [None]
  - BLOOD POTASSIUM DECREASED [None]
  - DEPRESSION [None]
  - ILEUS [None]
  - ATRIAL FIBRILLATION [None]
  - FLUID RETENTION [None]
